FAERS Safety Report 6708528-6 (Version None)
Quarter: 2010Q2

REPORT INFORMATION
  Report Type: 
  Country: None (occurrence: None)
  Receive Date: 20100503
  Receipt Date: 20090410
  Transmission Date: 20101027
  Serious: No
  Sender: FDA-Public Use
  Company Number: US-ASTRAZENECA-2009UW09145

PATIENT
  Age: 24169 Day
  Sex: Female
  Weight: 71.7 kg

DRUGS (19)
  1. NEXIUM [Suspect]
     Indication: GASTROOESOPHAGEAL REFLUX DISEASE
     Route: 048
     Dates: start: 20080401
  2. BYSTOLIC [Concomitant]
  3. DILTIAZEM HCL [Concomitant]
  4. LISINOPRIL [Concomitant]
  5. FUROSEMIDE [Concomitant]
  6. LIPITOR [Concomitant]
  7. ZETIA [Concomitant]
  8. NIASPAN [Concomitant]
  9. NORTRIPTYLINE HCL [Concomitant]
  10. ARTHROTEC [Concomitant]
  11. METFORMIN [Concomitant]
  12. ACTONEL [Concomitant]
  13. ASPIRIN [Concomitant]
  14. CALCIUM CITRATE [Concomitant]
  15. COQ10 [Concomitant]
  16. M.V.I. [Concomitant]
  17. VITAMIN B COMPLEX TAB [Concomitant]
  18. GLUCOSAMINE/CHONDROITIN [Concomitant]
  19. FISH OIL [Concomitant]

REACTIONS (3)
  - ABDOMINAL DISCOMFORT [None]
  - DRUG INEFFECTIVE [None]
  - GASTRIC DISORDER [None]
